FAERS Safety Report 12886759 (Version 1)
Quarter: 2016Q4

REPORT INFORMATION
  Report Type: Spontaneous
  Country: US (occurrence: US)
  Receive Date: 20161026
  Receipt Date: 20161026
  Transmission Date: 20170207
  Serious: No
  Sender: FDA-Public Use
  Company Number: US-PRESTIGE BRANDS -1058886

PATIENT
  Age: 65 Year
  Sex: Female

DRUGS (1)
  1. MONISTAT 7 [Suspect]
     Active Substance: MICONAZOLE NITRATE
     Indication: VULVOVAGINAL MYCOTIC INFECTION
     Route: 067
     Dates: start: 20160324, end: 20160325

REACTIONS (6)
  - Pain in extremity [Recovered/Resolved]
  - Pain in extremity [None]
  - Limb discomfort [None]
  - Condition aggravated [Unknown]
  - Sleep disorder [Recovered/Resolved]
  - Vulvovaginal pruritus [None]

NARRATIVE: CASE EVENT DATE: 20160324
